FAERS Safety Report 5141834-8 (Version None)
Quarter: 2006Q4

REPORT INFORMATION
  Report Type: 
  Country: None (occurrence: None)
  Receive Date: 20061027
  Receipt Date: 20061013
  Transmission Date: 20070319
  Serious: Yes (Death, Hospitalization)
  Sender: FDA-Public Use
  Company Number: 2006RR-03140

PATIENT
  Age: 91 Year
  Sex: Female

DRUGS (5)
  1. DICLOFENAC SODIUM [Suspect]
     Indication: OSTEOARTHRITIS
     Dosage: TOPICAL
     Route: 061
  2. BUMETANIDE [Suspect]
     Indication: HYPERTENSION
  3. IBUPROFEN [Suspect]
     Indication: OSTEOARTHRITIS
     Dosage: TOPICAL
     Route: 061
  4. SPIRONOLACTONE [Suspect]
     Indication: HYPERTENSION
  5. DIGOXIN [Suspect]
     Indication: ATRIAL FIBRILLATION
     Dosage: ORAL
     Route: 048

REACTIONS (2)
  - RENAL FAILURE [None]
  - THERAPEUTIC AGENT TOXICITY [None]
